FAERS Safety Report 8459731-9 (Version None)
Quarter: 2012Q2

REPORT INFORMATION
  Report Type: 
  Country: None (occurrence: None)
  Receive Date: 20120622
  Receipt Date: 20120614
  Transmission Date: 20120825
  Serious: Yes (Disabling)
  Sender: FDA-Public Use
  Company Number: US-MERCK-1206USA02370

PATIENT
  Sex: Female

DRUGS (2)
  1. FOSAMAX [Suspect]
     Route: 048
     Dates: start: 20080201, end: 20110601
  2. FOSAMAX [Suspect]
     Indication: OSTEOPOROSIS
     Route: 048
     Dates: start: 20000101, end: 20080101

REACTIONS (6)
  - QUALITY OF LIFE DECREASED [None]
  - FEMUR FRACTURE [None]
  - ANXIETY [None]
  - PAIN [None]
  - LOW TURNOVER OSTEOPATHY [None]
  - FEAR [None]
